FAERS Safety Report 6985004-7 (Version None)
Quarter: 2010Q3

REPORT INFORMATION
  Report Type: 
  Country: None (occurrence: None)
  Receive Date: 20100915
  Receipt Date: 20100902
  Transmission Date: 20110219
  Serious: Yes (Hospitalization)
  Sender: FDA-Public Use
  Company Number: PHHY2010MX59054

PATIENT
  Age: 60 Year
  Sex: Female

DRUGS (11)
  1. DIOVAN [Suspect]
     Indication: HYPERTENSION
     Dosage: 1 TABLET (160 MG), PER DAY
  2. SPIRONOLACTONE [Concomitant]
  3. KETOSTERIL [Concomitant]
  4. INSULIN [Concomitant]
  5. OMEPRAZOLE [Concomitant]
  6. ASPIRIN [Concomitant]
  7. CLOPIDOGREL [Concomitant]
  8. LIPITOR [Concomitant]
  9. LERCADIP [Concomitant]
     Dosage: UNK
  10. LOSARTAN POTASSIUM [Concomitant]
  11. PRAZOSIN HCL [Concomitant]

REACTIONS (2)
  - AGITATION [None]
  - FATIGUE [None]
